FAERS Safety Report 5106146-7 (Version None)
Quarter: 2006Q3

REPORT INFORMATION
  Report Type: 
  Country: None (occurrence: None)
  Receive Date: 20060918
  Receipt Date: 20060908
  Transmission Date: 20061208
  Serious: Yes (Hospitalization)
  Sender: FDA-Public Use
  Company Number: PT-JNJFOC-20060900507

PATIENT
  Age: 85 Year
  Sex: Female

DRUGS (3)
  1. REMICADE [Suspect]
     Indication: RHEUMATOID ARTHRITIS
     Dosage: EVENT OCCURRED FOLLOWING 1ST INFUSION
     Route: 042
  2. METHOTREXATE [Concomitant]
     Indication: RHEUMATOID ARTHRITIS
     Route: 048
  3. DIOVAN HCT [Concomitant]
     Indication: HYPERTENSION
     Route: 048

REACTIONS (2)
  - MUCOSAL INFLAMMATION [None]
  - PANCYTOPENIA [None]
